FAERS Safety Report 9229155 (Version 1)
Quarter: 2013Q2

REPORT INFORMATION
  Report Type: Spontaneous
  Country: US (occurrence: US)
  Receive Date: 20130412
  Receipt Date: 20130412
  Transmission Date: 20140414
  Serious: Yes (Other)
  Sender: FDA-Public Use
  Company Number: US-ASTELLAS-2013US001016

PATIENT
  Age: 4 Year
  Sex: Male

DRUGS (5)
  1. PROGRAF [Suspect]
     Indication: RENAL TRANSPLANT
     Dosage: UNK
     Route: 042
  2. PROGRAF [Suspect]
     Dosage: 0.5 MG, UNKNOWN/D
     Route: 042
  3. OKT-3 [Concomitant]
     Indication: RENAL TRANSPLANT
     Dosage: UNK
     Route: 065
  4. PREDNISONE [Concomitant]
     Indication: RENAL TRANSPLANT
     Dosage: UNK
     Route: 065
  5. CELLCEPT                           /01275102/ [Concomitant]
     Indication: RENAL TRANSPLANT
     Dosage: UNK
     Route: 065

REACTIONS (3)
  - Drug ineffective [Unknown]
  - Kidney transplant rejection [Unknown]
  - Immunosuppressant drug level increased [Unknown]
